FAERS Safety Report 4844719-7 (Version None)
Quarter: 2005Q4

REPORT INFORMATION
  Report Type: 
  Country: None (occurrence: None)
  Receive Date: 20051128
  Receipt Date: 20051108
  Transmission Date: 20060501
  Serious: Yes (Other)
  Sender: FDA-Public Use
  Company Number: USA0510110057

PATIENT
  Age: 59 Year
  Sex: Male

DRUGS (1)
  1. HUMALOG [Suspect]
     Dosage: SUBCUTAENOUS
     Route: 058

REACTIONS (2)
  - DEMENTIA [None]
  - PHARMACEUTICAL PRODUCT COMPLAINT [None]
